FAERS Safety Report 21535563 (Version 1)
Quarter: 2022Q4

REPORT INFORMATION
  Report Type: Spontaneous
  Country: US (occurrence: None)
  Receive Date: 20221031
  Receipt Date: 20221031
  Transmission Date: 20230112
  Serious: Yes (unspecified)
  Sender: FDA-Public Use
  Company Number: None

PATIENT
  Age: 68 Year
  Sex: Female
  Weight: 84.9 kg

DRUGS (2)
  1. RITUXAN [Suspect]
     Active Substance: RITUXIMAB
     Indication: Diverticulitis
     Dosage: FREQUENCY : ONCE;?
     Route: 041
     Dates: start: 20221031, end: 20221031
  2. Hydrocortisone 100 mg IVP [Concomitant]
     Dates: start: 20221031, end: 20221031

REACTIONS (2)
  - Pharyngeal hypoaesthesia [None]
  - Infusion related reaction [None]

NARRATIVE: CASE EVENT DATE: 20221031
